FAERS Safety Report 9221525 (Version 1)
Quarter: 2013Q2

REPORT INFORMATION
  Report Type: Spontaneous
  Country: US (occurrence: None)
  Receive Date: 20130408
  Receipt Date: 20130408
  Transmission Date: 20140414
  Serious: No
  Sender: FDA-Public Use
  Company Number: None

PATIENT
  Age: 62 Year
  Sex: Female
  Weight: 95.26 kg

DRUGS (1)
  1. ACETAMINOPHEN [Suspect]
     Indication: BACK PAIN
     Dosage: 2 GEL CAPS
     Route: 048
     Dates: start: 20130328, end: 20130404

REACTIONS (2)
  - Nightmare [None]
  - Abnormal dreams [None]
